FAERS Safety Report 5727745-5 (Version None)
Quarter: 2008Q2

REPORT INFORMATION
  Report Type: 
  Country: None (occurrence: None)
  Receive Date: 20080430
  Receipt Date: 20080414
  Transmission Date: 20081010
  Serious: No
  Sender: FDA-Public Use
  Company Number: 002#2#2008-00246

PATIENT
  Age: 73 Year
  Sex: Female
  Weight: 72.5755 kg

DRUGS (4)
  1. NEUPRO [Suspect]
     Indication: PARKINSON'S DISEASE
     Dosage: 6MG/24H, 1 IN 1 D, TRANSDERMAL; 2MG/24H, 1 IN 1 D, TRANSDERMAL; 4MG/24H, 1 IN 1 D, TRANSDERMAL
     Dates: start: 20071201, end: 20071201
  2. NEUPRO [Suspect]
     Indication: PARKINSON'S DISEASE
     Dosage: 6MG/24H, 1 IN 1 D, TRANSDERMAL; 2MG/24H, 1 IN 1 D, TRANSDERMAL; 4MG/24H, 1 IN 1 D, TRANSDERMAL
     Dates: start: 20071201, end: 20080102
  3. NEUPRO [Suspect]
     Indication: PARKINSON'S DISEASE
     Dosage: 6MG/24H, 1 IN 1 D, TRANSDERMAL; 2MG/24H, 1 IN 1 D, TRANSDERMAL; 4MG/24H, 1 IN 1 D, TRANSDERMAL
     Dates: start: 20080103
  4. CARBIDOPA AND LEVODOPA [Concomitant]

REACTIONS (9)
  - APPLICATION SITE ERYTHEMA [None]
  - APPLICATION SITE RASH [None]
  - APPLICATION SITE VESICLES [None]
  - ASTHENIA [None]
  - DRUG INEFFECTIVE [None]
  - MOVEMENT DISORDER [None]
  - MUSCULOSKELETAL STIFFNESS [None]
  - PHARMACEUTICAL PRODUCT COMPLAINT [None]
  - PRURITUS [None]
